FAERS Safety Report 8360325-4 (Version None)
Quarter: 2012Q2

REPORT INFORMATION
  Report Type: 
  Country: None (occurrence: None)
  Receive Date: 20120515
  Receipt Date: 20120508
  Transmission Date: 20120825
  Serious: Yes (Hospitalization, Other)
  Sender: FDA-Public Use
  Company Number: US-JNJFOC-20120214028

PATIENT
  Sex: Male
  Weight: 70.31 kg

DRUGS (14)
  1. TOPAMAX [Concomitant]
     Indication: MIGRAINE PROPHYLAXIS
     Dosage: 100 MG ONCE DAILY
     Route: 048
     Dates: end: 20120118
  2. DILTIAZEM [Concomitant]
     Indication: HYPERTENSION
     Dosage: ONCE DAILY
     Route: 048
     Dates: end: 20120118
  3. VALIUM [Concomitant]
     Indication: MIGRAINE
     Dosage: 20 MG ONCE DAILY
     Route: 048
     Dates: end: 20120118
  4. NUCYNTA ER [Suspect]
     Indication: BACK PAIN
     Dosage: 1 PER DAY
     Route: 048
     Dates: start: 20120112, end: 20120118
  5. EFFEXOR XR [Concomitant]
     Indication: DEPRESSION
     Dosage: 300 MG ONCE DAILY
     Route: 048
     Dates: end: 20120118
  6. PANTOPRAZOLE [Concomitant]
     Indication: DYSPEPSIA
     Dosage: 40 MG ONCE DAILY
     Route: 048
     Dates: end: 20120118
  7. DEPAKOTE [Concomitant]
     Indication: MIGRAINE
     Dosage: 500 MG ONCE DAILY
     Route: 048
     Dates: end: 20120118
  8. BACLOFEN [Concomitant]
     Indication: MIGRAINE
     Dosage: 3 TIMES DAILY
     Route: 048
     Dates: end: 20120118
  9. FLUOXETINE [Concomitant]
     Indication: DEPRESSION
     Dosage: 20 MG ONCE DAILY
     Route: 048
     Dates: start: 20020101, end: 20120118
  10. DIOVAN [Concomitant]
     Indication: HYPERTENSION
     Dosage: ONCE DAILY
     Route: 048
     Dates: end: 20120118
  11. DOXAZOSIN MESYLATE [Concomitant]
     Indication: HYPERTENSION
     Dosage: 8 MG ONCE DAILY
     Route: 048
     Dates: end: 20120118
  12. LIPITOR [Concomitant]
     Indication: BLOOD CHOLESTEROL INCREASED
     Dosage: ONCE DAILY
     Route: 048
     Dates: end: 20120118
  13. NUCYNTA ER [Suspect]
     Indication: ARTHRALGIA
     Dosage: 1 PER DAY
     Route: 048
     Dates: start: 20120112, end: 20120118
  14. REMERON [Concomitant]
     Indication: DEPRESSION
     Dosage: ONCE DAILY
     Route: 048
     Dates: end: 20120118

REACTIONS (3)
  - SEROTONIN SYNDROME [None]
  - RENAL FAILURE [None]
  - LOSS OF CONSCIOUSNESS [None]
